FAERS Safety Report 20716400 (Version 2)
Quarter: 2022Q3

REPORT INFORMATION
  Report Type: Spontaneous
  Country: US (occurrence: US)
  Receive Date: 20220416
  Receipt Date: 20220721
  Transmission Date: 20221027
  Serious: Yes (Hospitalization, Other)
  Sender: FDA-Public Use
  Company Number: US-JNJFOC-20220418158

PATIENT
  Age: 85 Year
  Sex: Male
  Weight: 56.750 kg

DRUGS (2)
  1. DARZALEX FASPRO [Suspect]
     Active Substance: DARATUMUMAB\HYALURONIDASE-FIHJ
     Indication: Plasma cell myeloma
     Dosage: LAST DOSE ADMINISTERED WAS BACK IN DECEMBER 14, 2021
     Route: 058
     Dates: start: 202106
  2. DARZALEX [Suspect]
     Active Substance: DARATUMUMAB
     Indication: Plasma cell myeloma
     Dosage: LAST DOSE OF DARZALEX IV WAS PRIOR TO JUNE 2021
     Route: 042
     Dates: start: 2018

REACTIONS (3)
  - Acute kidney injury [Unknown]
  - Cardiac failure [Unknown]
  - Sepsis [Unknown]

NARRATIVE: CASE EVENT DATE: 20220101
